FAERS Safety Report 9170904 (Version 1)
Quarter: 2013Q1

REPORT INFORMATION
  Report Type: Spontaneous
  Country: IT (occurrence: None)
  Receive Date: 20130312
  Receipt Date: 20130312
  Transmission Date: 20140127
  Serious: Yes (Other)
  Sender: FDA-Public Use
  Company Number: 2013-03498

PATIENT
  Age: 49 Year
  Sex: Female

DRUGS (2)
  1. PACLITAXEL [Suspect]
     Indication: PRODUCT USED FOR UNKNOWN INDICATION
     Route: 042
     Dates: start: 20121116
  2. AVASTIN [Suspect]
     Indication: BREAST CANCER
     Route: 042
     Dates: start: 20121116, end: 20130125

REACTIONS (2)
  - Drug interaction [None]
  - Hypertension [None]
